FAERS Safety Report 7261501-4 (Version None)
Quarter: 2011Q1

REPORT INFORMATION
  Report Type: 
  Country: None (occurrence: None)
  Receive Date: 20110130
  Receipt Date: 20100929
  Transmission Date: 20110831
  Serious: No
  Sender: FDA-Public Use
  Company Number: US-ABBOTT-10P-163-0675083-00

PATIENT
  Age: 43 Year
  Sex: Female

DRUGS (5)
  1. COMPAZINE [Concomitant]
     Indication: PRODUCT USED FOR UNKNOWN INDICATION
     Route: 048
  2. HUMIRA [Suspect]
     Indication: CROHN'S DISEASE
     Dates: start: 20100901
  3. DIO [Concomitant]
     Indication: PAIN
  4. ASACOL [Concomitant]
     Indication: CROHN'S DISEASE
     Route: 048
  5. LOMOTIL [Concomitant]
     Indication: DIARRHOEA

REACTIONS (2)
  - INFLUENZA LIKE ILLNESS [None]
  - MUSCULAR WEAKNESS [None]
